FAERS Safety Report 4611927-X (Version None)
Quarter: 2005Q2

REPORT INFORMATION
  Report Type: 
  Country: None (occurrence: None)
  Receive Date: 20050308
  Receipt Date: 20041217
  Transmission Date: 20051028
  Serious: Yes (Other)
  Sender: FDA-Public Use
  Company Number: 2004UW25722

PATIENT
  Age: 61 Year
  Sex: Male
  Weight: 58.967 kg

DRUGS (6)
  1. CRESTOR [Suspect]
     Indication: BLOOD CHOLESTEROL INCREASED
     Dates: start: 20041210, end: 20041217
  2. DIOVAN [Suspect]
     Dates: start: 20041210
  3. TOPROL-XL [Concomitant]
  4. FUROSEMIDE [Concomitant]
  5. PREVACID [Concomitant]
  6. DIGOXIN [Concomitant]

REACTIONS (2)
  - FLUSHING [None]
  - HEART RATE INCREASED [None]
